FAERS Safety Report 10048113 (Version 1)
Quarter: 2014Q1

REPORT INFORMATION
  Report Type: Spontaneous
  Country: US (occurrence: US)
  Receive Date: 20140331
  Receipt Date: 20140331
  Transmission Date: 20141002
  Serious: No
  Sender: FDA-Public Use
  Company Number: US-PFIZER INC-2014082481

PATIENT
  Age: 37 Year
  Sex: Female
  Weight: 92.97 kg

DRUGS (3)
  1. XELJANZ [Suspect]
     Indication: RHEUMATOID ARTHRITIS
     Dosage: UNK
  2. PREDNISONE [Concomitant]
     Dosage: UNK
  3. MELATONIN [Concomitant]
     Dosage: UNK

REACTIONS (1)
  - Treatment failure [Unknown]
